FAERS Safety Report 8512387-9 (Version None)
Quarter: 2012Q3

REPORT INFORMATION
  Report Type: 
  Country: None (occurrence: None)
  Receive Date: 20120716
  Receipt Date: 20120712
  Transmission Date: 20120928
  Serious: Yes (Hospitalization, Other)
  Sender: FDA-Public Use
  Company Number: PHHY2012RU057300

PATIENT
  Sex: Female

DRUGS (3)
  1. TASIGNA [Suspect]
     Dosage: 800 MG, DAILY
     Dates: start: 20120412
  2. NO TREATMENT RECEIVED [Suspect]
  3. TASIGNA [Suspect]
     Indication: LEUKAEMIA RECURRENT
     Dosage: 800 MG, DAILY
     Route: 048
     Dates: start: 20090518, end: 20110901

REACTIONS (7)
  - NAUSEA [None]
  - CHRONIC MYELOID LEUKAEMIA [None]
  - ASTERIXIS [None]
  - DECREASED APPETITE [None]
  - HEPATOTOXICITY [None]
  - FATIGUE [None]
  - ASPARTATE AMINOTRANSFERASE INCREASED [None]
